FAERS Safety Report 6146956-0 (Version None)
Quarter: 2009Q2

REPORT INFORMATION
  Report Type: 
  Country: None (occurrence: None)
  Receive Date: 20090407
  Receipt Date: 20090323
  Transmission Date: 20091009
  Serious: Yes (Death)
  Sender: FDA-Public Use
  Company Number: JP-GENENTECH-280638

PATIENT

DRUGS (2)
  1. RITUXAN [Suspect]
     Indication: LYMPHOMA
     Dosage: 375 MG/M2, D 1, 7 + 14
     Route: 065
  2. CYTARABINE [Suspect]
     Indication: DRUG USE FOR UNKNOWN INDICATION

REACTIONS (6)
  - ADENOVIRAL HAEMORRHAGIC CYSTITIS [None]
  - HERPES ZOSTER [None]
  - IMMUNOGLOBULINS DECREASED [None]
  - NEUTROPENIA [None]
  - PNEUMOCYSTIS JIROVECI PNEUMONIA [None]
  - SUDDEN DEATH [None]
